FAERS Safety Report 6081341-1 (Version None)
Quarter: 2009Q1

REPORT INFORMATION
  Report Type: 
  Country: None (occurrence: None)
  Receive Date: 20090218
  Receipt Date: 20090212
  Transmission Date: 20090719
  Serious: Yes (Hospitalization)
  Sender: FDA-Public Use
  Company Number: FR-WYE-G03106409

PATIENT
  Sex: Male
  Weight: 25 kg

DRUGS (1)
  1. ADVIL [Suspect]
     Indication: INFLUENZA LIKE ILLNESS
     Dosage: ONE SINGLE DOSE
     Route: 048
     Dates: start: 20081217, end: 20081217

REACTIONS (2)
  - GASTRITIS ATROPHIC [None]
  - GASTRITIS HAEMORRHAGIC [None]
